FAERS Safety Report 9131258 (Version 3)
Quarter: 2013Q2

REPORT INFORMATION
  Report Type: Spontaneous
  Country: ES (occurrence: ES)
  Receive Date: 20130301
  Receipt Date: 20130430
  Transmission Date: 20140414
  Serious: Yes (Hospitalization, Other)
  Sender: FDA-Public Use
  Company Number: ES-PFIZER INC-2013070912

PATIENT
  Age: 55 Year
  Sex: Female

DRUGS (7)
  1. MORPHINE SULFATE [Suspect]
     Indication: ANALGESIC THERAPY
     Dosage: UNK
     Route: 048
  2. MORPHINE SULFATE [Suspect]
     Indication: BONE PAIN
     Dosage: 450 MG/24H
     Route: 058
  3. MORPHINE SULFATE [Suspect]
     Indication: NEURALGIA
     Dosage: UNK
     Route: 051
  4. TRAMADOL HCL [Suspect]
     Indication: ANALGESIC THERAPY
     Dosage: UNK
     Route: 065
  5. FENTANYL [Suspect]
     Indication: ANALGESIC THERAPY
     Dosage: UNK
     Route: 062
  6. OXYCODONE HYDROCHLORIDE [Suspect]
     Indication: ANALGESIC THERAPY
     Dosage: APPROXIMATELY 320 MG/24 HR
     Route: 048
  7. BUPRENORPHINE [Suspect]
     Indication: ANALGESIC THERAPY
     Dosage: UNK
     Route: 062

REACTIONS (13)
  - Constipation [Recovering/Resolving]
  - Haemorrhoids [Recovering/Resolving]
  - Ileus paralytic [Unknown]
  - Drug ineffective [Unknown]
  - Metastases to spine [None]
  - Metastases to bone [None]
  - Metastases to soft tissue [None]
  - Malignant neoplasm progression [None]
  - Acute abdomen [None]
  - Respiratory failure [None]
  - Pneumonia [None]
  - Pulmonary haemorrhage [None]
  - Gastrointestinal hypomotility [None]
